FAERS Safety Report 5558643-8 (Version None)
Quarter: 2007Q4

REPORT INFORMATION
  Report Type: 
  Country: None (occurrence: None)
  Receive Date: 20071214
  Receipt Date: 20071210
  Transmission Date: 20080405
  Serious: Yes (Death)
  Sender: FDA-Public Use
  Company Number: US-BOEHRINGER INGELHEIM PHARMACEUTICALS, INC.-2007-DE-07272GD

PATIENT

DRUGS (4)
  1. ASPIRIN [Suspect]
     Indication: ANTIPLATELET THERAPY
     Dosage: 81 MG - 100 MG
  2. DIPYRIDAMOLE [Suspect]
     Indication: ANTIPLATELET THERAPY
  3. WARFARIN SODIUM [Suspect]
     Indication: ANTICOAGULANT THERAPY
  4. HEPARIN [Suspect]
     Indication: ANTICOAGULANT THERAPY

REACTIONS (7)
  - AORTIC THROMBOSIS [None]
  - BRAIN DEATH [None]
  - EMBOLISM [None]
  - GASTROINTESTINAL HAEMORRHAGE [None]
  - HAEMOLYSIS [None]
  - VENTRICULAR ARRHYTHMIA [None]
  - VENTRICULAR FIBRILLATION [None]
